FAERS Safety Report 8770894 (Version 1)
Quarter: 2012Q4

REPORT INFORMATION
  Report Type: 
  Country: US (occurrence: US)
  Receive Date: 20120906
  Receipt Date: 20120906
  Transmission Date: 20130627
  Serious: Yes (Hospitalization)
  Sender: FDA-Public Use
  Company Number: US-BAYER-2012-091250

PATIENT
  Age: 28 Year
  Sex: Female

DRUGS (5)
  1. YAZ [Suspect]
  2. SINGULAIR [Concomitant]
  3. ALBUTEROL [Concomitant]
  4. BECONASE [Concomitant]
  5. PRILOSEC [Concomitant]

REACTIONS (1)
  - Myocardial infarction [None]
